FAERS Safety Report 11104667 (Version 2)
Quarter: 2015Q2

REPORT INFORMATION
  Report Type: Spontaneous
  Country: KR (occurrence: KR)
  Receive Date: 20150511
  Receipt Date: 20150511
  Transmission Date: 20150821
  Serious: Yes (Death)
  Sender: FDA-Public Use
  Company Number: PHHY2015KR052404

PATIENT
  Sex: Male

DRUGS (1)
  1. CICLOSPORIN [Suspect]
     Active Substance: CYCLOSPORINE
     Indication: NEPHROTIC SYNDROME
     Route: 065

REACTIONS (5)
  - Septic shock [Fatal]
  - Acute hepatitis B [Fatal]
  - Hepatic encephalopathy [Fatal]
  - Drug ineffective [Unknown]
  - Epstein-Barr virus infection [Fatal]
